FAERS Safety Report 11276513 (Version 1)
Quarter: 2015Q3

REPORT INFORMATION
  Report Type: Report from Study
  Country: US (occurrence: US)
  Receive Date: 20150716
  Receipt Date: 20150716
  Transmission Date: 20151125
  Serious: No
  Sender: FDA-Public Use
  Company Number: PHHY2013US092345

PATIENT
  Age: 9 Year
  Sex: Female

DRUGS (2)
  1. ICL670A [Suspect]
     Active Substance: DEFERASIROX
     Dosage: 687 OT
     Route: 048
     Dates: start: 20110523, end: 20140724
  2. ICL670A [Suspect]
     Active Substance: DEFERASIROX
     Indication: HAEMOSIDEROSIS
     Dosage: 625 OT
     Route: 048
     Dates: start: 20101007

REACTIONS (12)
  - Back pain [Recovered/Resolved]
  - Wheezing [Recovered/Resolved]
  - Fatigue [Recovered/Resolved]
  - Back pain [Recovered/Resolved]
  - Urinary tract infection [Recovered/Resolved]
  - Contusion [Recovered/Resolved]
  - Urticaria [Recovered/Resolved]
  - Abdominal pain [Recovered/Resolved]
  - Contusion [Recovered/Resolved]
  - Contusion [Recovered/Resolved]
  - Eye swelling [Recovered/Resolved]
  - Urticaria [Recovered/Resolved]

NARRATIVE: CASE EVENT DATE: 20120801
